FAERS Safety Report 7169641-5 (Version None)
Quarter: 2010Q4

REPORT INFORMATION
  Report Type: 
  Country: None (occurrence: None)
  Receive Date: 20101217
  Receipt Date: 20101209
  Transmission Date: 20110411
  Serious: Yes (Hospitalization, Other)
  Sender: FDA-Public Use
  Company Number: US-JNJFOC-20101204380

PATIENT
  Sex: Female
  Weight: 68.04 kg

DRUGS (8)
  1. DURAGESIC-100 [Suspect]
     Indication: PAIN
     Route: 062
  2. FENTANYL-100 [Suspect]
     Indication: PAIN
     Route: 062
  3. DURAGESIC-100 [Suspect]
     Route: 062
  4. FENTANYL CITRATE [Suspect]
     Indication: PAIN
     Route: 062
  5. WELLBUTRIN [Concomitant]
     Indication: DEPRESSION
     Route: 048
  6. METHADONE HCL [Concomitant]
     Indication: BREAKTHROUGH PAIN
     Route: 048
  7. BLOOD PRESSURE MEDICATION NOS [Concomitant]
     Indication: BLOOD PRESSURE
     Route: 048
  8. CHOLESTEROL MEDICATION NOS [Concomitant]
     Indication: BLOOD CHOLESTEROL
     Route: 048

REACTIONS (9)
  - ACTIVITIES OF DAILY LIVING IMPAIRED [None]
  - DEPRESSION [None]
  - FEELING OF BODY TEMPERATURE CHANGE [None]
  - HOSPITALISATION [None]
  - MALAISE [None]
  - PAIN [None]
  - PRODUCT ADHESION ISSUE [None]
  - WITHDRAWAL SYNDROME [None]
  - WRONG TECHNIQUE IN DRUG USAGE PROCESS [None]
